FAERS Safety Report 8429466-7 (Version None)
Quarter: 2012Q2

REPORT INFORMATION
  Report Type: 
  Country: None (occurrence: None)
  Receive Date: 20120612
  Receipt Date: 20120530
  Transmission Date: 20120825
  Serious: No
  Sender: FDA-Public Use
  Company Number: US-ASTRAZENECA-2012SE35977

PATIENT
  Age: 67 Year
  Sex: Female
  Weight: 72.6 kg

DRUGS (3)
  1. PRILOSEC OTC [Suspect]
     Route: 048
  2. PRILOSEC [Suspect]
     Route: 048
  3. NEXIUM [Suspect]
     Indication: GASTROOESOPHAGEAL REFLUX DISEASE
     Route: 048

REACTIONS (6)
  - EROSIVE OESOPHAGITIS [None]
  - DYSPEPSIA [None]
  - DRUG INEFFECTIVE [None]
  - ORAL DISCOMFORT [None]
  - HIATUS HERNIA [None]
  - PAIN [None]
